FAERS Safety Report 21307997 (Version 3)
Quarter: 2022Q4

REPORT INFORMATION
  Report Type: Report from Study
  Country: CA (occurrence: CA)
  Receive Date: 20220908
  Receipt Date: 20221016
  Transmission Date: 20230112
  Serious: Yes (Hospitalization, Other)
  Sender: FDA-Public Use
  Company Number: CA-ABBVIE-22K-028-4530330-00

PATIENT
  Sex: Female

DRUGS (1)
  1. HUMIRA [Suspect]
     Active Substance: ADALIMUMAB
     Indication: Crohn^s disease
     Route: 058
     Dates: start: 20170718, end: 20220809

REACTIONS (10)
  - Facial paralysis [Recovering/Resolving]
  - Ear infection [Unknown]
  - Labyrinthitis [Unknown]
  - Otitis externa [Unknown]
  - Obstruction [Unknown]
  - Tympanic membrane disorder [Unknown]
  - Deafness unilateral [Unknown]
  - Pain [Unknown]
  - Vomiting [Unknown]
  - Dehydration [Unknown]

NARRATIVE: CASE EVENT DATE: 20220101
